FAERS Safety Report 21887131 (Version 1)
Quarter: 2023Q1

REPORT INFORMATION
  Report Type: Report from Study
  Country: US (occurrence: US)
  Receive Date: 20230119
  Receipt Date: 20230119
  Transmission Date: 20230418
  Serious: No
  Sender: FDA-Public Use
  Company Number: US-ABBVIE-4244987

PATIENT
  Age: 68 Year
  Sex: Female

DRUGS (2)
  1. HUMIRA [Suspect]
     Active Substance: ADALIMUMAB
     Indication: Hidradenitis
     Route: 058
     Dates: start: 20211120
  2. HUMIRA [Suspect]
     Active Substance: ADALIMUMAB
     Indication: Crohn^s disease

REACTIONS (2)
  - Malaise [Unknown]
  - Influenza [Unknown]

NARRATIVE: CASE EVENT DATE: 20221201
